FAERS Safety Report 20935063 (Version 1)
Quarter: 2022Q2

REPORT INFORMATION
  Report Type: Report from Study
  Country: CA (occurrence: CA)
  Receive Date: 20220608
  Receipt Date: 20220608
  Transmission Date: 20220720
  Serious: Yes (Life-Threatening, Hospitalization, Disabling, Other)
  Sender: FDA-Public Use
  Company Number: CA-BoehringerIngelheim-2022-BI-152196

PATIENT
  Age: 64 Year
  Sex: Male

DRUGS (2)
  1. OFEV [Suspect]
     Active Substance: NINTEDANIB
     Indication: Idiopathic pulmonary fibrosis
     Route: 048
     Dates: start: 20210510
  2. OFEV [Suspect]
     Active Substance: NINTEDANIB
     Dosage: PT TAKING 150 MG OD ON HIS OWN
     Route: 048

REACTIONS (3)
  - Craniotomy [Not Recovered/Not Resolved]
  - Seizure [Not Recovered/Not Resolved]
  - Intentional product use issue [Not Recovered/Not Resolved]
